FAERS Safety Report 13620592 (Version 2)
Quarter: 2017Q3

REPORT INFORMATION
  Report Type: Spontaneous
  Country: AU (occurrence: AU)
  Receive Date: 20170607
  Receipt Date: 20170712
  Transmission Date: 20171127
  Serious: Yes (Hospitalization, Other)
  Sender: FDA-Public Use
  Company Number: AU-ASTRAZENECA-2017SE58341

PATIENT
  Sex: Female
  Weight: 62 kg

DRUGS (1)
  1. TAGRISSO [Suspect]
     Active Substance: OSIMERTINIB
     Dosage: DOSE UNKNOWN
     Route: 048

REACTIONS (2)
  - Disease progression [Unknown]
  - Metastases to central nervous system [Recovered/Resolved]
